FAERS Safety Report 7488144-1 (Version None)
Quarter: 2011Q2

REPORT INFORMATION
  Report Type: 
  Country: None (occurrence: None)
  Receive Date: 20110518
  Receipt Date: 20110506
  Transmission Date: 20111010
  Serious: Yes (Life-Threatening)
  Sender: FDA-Public Use
  Company Number: IT-ROCHE-775689

PATIENT
  Sex: Male

DRUGS (2)
  1. OXALIPLATIN [Concomitant]
     Dosage: UNKNOWN TRADE NAME, DOSE:130 MG/SQUARE METER
     Dates: start: 20110405, end: 20110405
  2. XELODA [Suspect]
     Dosage: DOSE: 2000 MG/SQUARE METER
     Route: 048
     Dates: start: 20110405, end: 20110419

REACTIONS (6)
  - PALMAR-PLANTAR ERYTHRODYSAESTHESIA SYNDROME [None]
  - DIARRHOEA HAEMORRHAGIC [None]
  - LEUKOPENIA [None]
  - PANCYTOPENIA [None]
  - MUCOSAL INFLAMMATION [None]
  - BRONCHOPNEUMOPATHY [None]
